FAERS Safety Report 16886265 (Version 1)
Quarter: 2019Q4

REPORT INFORMATION
  Report Type: Spontaneous
  Country: US (occurrence: US)
  Receive Date: 20191004
  Receipt Date: 20191004
  Transmission Date: 20200122
  Serious: No
  Sender: FDA-Public Use
  Company Number: US-TEVA-2019-US-1118066

PATIENT
  Age: 52 Year
  Sex: Female

DRUGS (2)
  1. BUPRENORPHINE TRANSDERMAL SYSTEM [Suspect]
     Active Substance: BUPRENORPHINE
     Route: 061
  2. BUPRENORPHINE TRANSDERMAL SYSTEM [Suspect]
     Active Substance: BUPRENORPHINE
     Indication: PAIN
     Dosage: 10 PATCHES 7 DAY
     Route: 061
     Dates: start: 201909, end: 201909

REACTIONS (10)
  - Application site scab [Unknown]
  - Application site burn [Unknown]
  - Application site vesicles [Unknown]
  - Product adhesion issue [Unknown]
  - Pain [Unknown]
  - Product physical issue [Unknown]
  - Frustration tolerance decreased [Unknown]
  - Application site infection [Unknown]
  - Application site pruritus [Unknown]
  - Adverse event [Unknown]

NARRATIVE: CASE EVENT DATE: 2019
